FAERS Safety Report 7302850-0 (Version None)
Quarter: 2011Q1

REPORT INFORMATION
  Report Type: 
  Country: None (occurrence: None)
  Receive Date: 20110218
  Receipt Date: 20110214
  Transmission Date: 20110831
  Serious: Yes (Death)
  Sender: FDA-Public Use
  Company Number: US-ABBOTT-11P-163-0705266-00

PATIENT
  Sex: Male

DRUGS (5)
  1. LASIX [Concomitant]
     Indication: HYPERTENSION
  2. DIOVAN [Concomitant]
     Indication: HYPERTENSION
  3. LUPRON DEPOT [Suspect]
     Indication: PROSTATE CANCER
     Dates: start: 20101001
  4. ACTONEL [Concomitant]
     Indication: OSTEOPOROSIS
  5. CELEBREX [Concomitant]
     Indication: PAIN

REACTIONS (1)
  - MYOCARDIAL INFARCTION [None]
